FAERS Safety Report 26123157 (Version 1)
Quarter: 2025Q4

REPORT INFORMATION
  Report Type: Report from Study
  Country: US (occurrence: US)
  Receive Date: 20251204
  Receipt Date: 20251204
  Transmission Date: 20260118
  Serious: Yes (Other)
  Sender: JAZZ
  Company Number: US-JAZZ PHARMACEUTICALS-2025-US-016549

PATIENT
  Age: 32 Year
  Sex: Female

DRUGS (30)
  1. XYWAV [Suspect]
     Active Substance: CALCIUM OXYBATE\MAGNESIUM OXYBATE\POTASSIUM OXYBATE\SODIUM OXYBATE
     Indication: Hypersomnia
     Dosage: 4.5 GRAM, BID
     Dates: start: 20250604
  2. XYWAV [Suspect]
     Active Substance: CALCIUM OXYBATE\MAGNESIUM OXYBATE\POTASSIUM OXYBATE\SODIUM OXYBATE
     Dosage: UNK
  3. XYWAV [Suspect]
     Active Substance: CALCIUM OXYBATE\MAGNESIUM OXYBATE\POTASSIUM OXYBATE\SODIUM OXYBATE
     Dosage: UNK
  4. MODAFINIL [Concomitant]
     Active Substance: MODAFINIL
     Indication: Product used for unknown indication
     Dosage: UNK
  5. ACETAMINOPHEN\CODEINE PHOSPHATE [Concomitant]
     Active Substance: ACETAMINOPHEN\CODEINE PHOSPHATE
     Indication: Product used for unknown indication
     Dosage: TAKE 2 TABLETS BY MOUTH EVERY SIX HOURS.
  6. ALBUTEROL SULFATE [Concomitant]
     Active Substance: ALBUTEROL SULFATE
     Indication: Product used for unknown indication
     Dosage: INHALE 1 OR 2 PUFFS BY MOUTH EVERY SIX HOURS AS NEEDED FOR DYSPNEA/SHORTNESS OF BREATH.
  7. CELECOXIB [Concomitant]
     Active Substance: CELECOXIB
     Indication: Product used for unknown indication
     Dosage: 1 CAPSULE BY MOUTH TWO TIMES DAILY WITH MEALS.
  8. CETIRIZINE HCL [Concomitant]
     Active Substance: CETIRIZINE HYDROCHLORIDE
     Indication: Product used for unknown indication
     Dosage: TAKE 20 MG BY MOUTH TWO TIMES DAILY.
  9. CLINDAMYCIN 1 A PHARMA [Concomitant]
     Indication: Product used for unknown indication
     Dosage: MYCIN 1% TOPICAL LOTION (CLEOCIN T) APPLY TO THE FACE, CHEST, AND BACK ONCE IN THE MORNING
  10. CROMOLYN SODIUM [Concomitant]
     Active Substance: CROMOLYN SODIUM
     Indication: Product used for unknown indication
     Dosage: TAKE 10 ML BY MOUTH FOUR TIMES DAILY.
  11. EPINEPHRINE [Concomitant]
     Active Substance: EPINEPHRINE
     Indication: Product used for unknown indication
     Dosage: HRINE 0.3 MG/0.3 ML INJECTION AUTO-INJECTOR (EPIPEN) INJECT 1 DEVICE INTO THE MUSCLE (IM) AS NEEDED FOR ALLERGIC REACTION. ADMINISTER ONE DOSE EVERY 10 TO 20 MINUTES, NO MORE THAN 2 DOSES WITHOUT MEDICAL SUPERVISION.
  12. VITAMIN D2 [Concomitant]
     Active Substance: ERGOCALCIFEROL
     Indication: Product used for unknown indication
     Dosage: TAKE BY MOUTH.
  13. FAMOTIDINE [Concomitant]
     Active Substance: FAMOTIDINE
     Indication: Product used for unknown indication
     Dosage: BID
     Dates: start: 20190124
  14. GALCANEZUMAB-GNLM [Concomitant]
     Active Substance: GALCANEZUMAB-GNLM
     Indication: Product used for unknown indication
     Dosage: INJECT 1 ML UNDER THE SKIN (SUBC) EVERY THIRTY DAYS.
  15. KETOCONAZOLE [Concomitant]
     Active Substance: KETOCONAZOLE
     Indication: Product used for unknown indication
     Dosage: APPLY A SMALL AMOUNT INTO THE AFFECTED AREA TWICE DAILY FOR FUNGAL INFECTION
  16. MELATONIN [MELATONIN;PYRIDOXINE HYDROCHLORIDE] [Concomitant]
     Indication: Product used for unknown indication
     Dosage: UNK
  17. METHOCARBAMOL AL [Concomitant]
     Indication: Product used for unknown indication
     Dosage: TAKE 1 TO 2 TABLETS BY MOUTH THREE TIMES DAILY.
  18. METHOCARBAMOL AL [Concomitant]
     Dosage: UNK
  19. NALTREXONE [Concomitant]
     Active Substance: NALTREXONE
     Indication: Product used for unknown indication
     Dosage: 4.5 MG TABLETS. 1 TAB PO HS INDICATIONS: DISORDER CHARACTERIZED BY STIFF, TENDER + PAINFUL MUSCLES
  20. NORETHINDRONE [Concomitant]
     Active Substance: NORETHINDRONE
     Indication: Product used for unknown indication
     Dosage: TAKE 1 TABLET BY MOUTH ONCE DAILY
  21. ONDANSETRON [Concomitant]
     Active Substance: ONDANSETRON
     Indication: Product used for unknown indication
     Dosage: DISSOLVE 1 TO 2 TABLETS ON TONGUE AND SWALLOW EVERY EIGHT HOURS AS NEEDED.
  22. OXYCODONE HYDROCHLORIDE [Concomitant]
     Active Substance: OXYCODONE HYDROCHLORIDE
     Indication: Product used for unknown indication
     Dosage: TAKE 1 TABLET BY MOUTH EVERY EIGHT HOURS AS NEEDED FOR SEVERE PAIN OR MODERATE PAIN.
  23. OXYCODONE HYDROCHLORIDE [Concomitant]
     Active Substance: OXYCODONE HYDROCHLORIDE
     Dosage: UNK
  24. PREGABALIN [Concomitant]
     Active Substance: PREGABALIN
     Indication: Product used for unknown indication
     Dosage: AKE 1 CAPSULE BY MOUTH THREE TIMES DAILY.
  25. PROPRANOLOL [Concomitant]
     Active Substance: PROPRANOLOL HYDROCHLORIDE
     Indication: Product used for unknown indication
     Dosage: TAKE 1 TABLET BY MOUTH THREE TIMES DAILY.
  26. PYRIDOSTIGMINE [Concomitant]
     Active Substance: PYRIDOSTIGMINE
     Indication: Product used for unknown indication
     Dosage: TAKE 1 AND 1/2 TABLETS BY MOUTH ONCE DAILY IN THE MORNING AND 1 AND 1/2 TABLETS ONCE DAILY AT NOON AND 1 TABLET ONCE DAILY AT BEDTIME.
  27. SODIUM CHLORIDE [Concomitant]
     Active Substance: SODIUM CHLORIDE
     Indication: Product used for unknown indication
     Dosage: TAKE 1,000 MG BY MOUTH THREE TIMES DAILY.
  28. TRETINOIN [Concomitant]
     Active Substance: TRETINOIN
     Indication: Product used for unknown indication
     Dosage: APPLY TOPICALLY AT BEDTIME. WASH FACE WITH MILD SOAP. PAT DRY. WAIT 20-30 MIN TO APPLY. AVOID EYES, NOSTRILS, + MOUTH.
  29. TRIAMCINOLONE ACETONIDE + UREA [Concomitant]
     Indication: Product used for unknown indication
     Dosage: APPLY TO THE SCALP ONCE NIGHTLY FOR 2 WEEKS FOR FLARES, THEN TWICE WEEKLY FOR MAINTENANCE
  30. SENNA LEAF [Concomitant]
     Active Substance: SENNA LEAF
     Indication: Product used for unknown indication
     Dosage: 8.6-50 MG

REACTIONS (4)
  - Surgery [Unknown]
  - Sinus disorder [Unknown]
  - Therapeutic procedure [Unknown]
  - Drug hypersensitivity [Unknown]

NARRATIVE: CASE EVENT DATE: 20250917
